FAERS Safety Report 11713286 (Version 1)
Quarter: 2015Q4

REPORT INFORMATION
  Report Type: Spontaneous
  Country: US (occurrence: None)
  Receive Date: 20151105
  Receipt Date: 20151105
  Transmission Date: 20160304
  Serious: Yes (Other)
  Sender: FDA-Public Use
  Company Number: 1937531-2015-00012

PATIENT

DRUGS (1)
  1. ALCARE PLUS [Suspect]
     Active Substance: ALCOHOL

REACTIONS (3)
  - Fall [None]
  - Product container issue [None]
  - Device malfunction [None]

NARRATIVE: CASE EVENT DATE: 20130326
